FAERS Safety Report 9421141 (Version 1)
Quarter: 2013Q3

REPORT INFORMATION
  Report Type: Spontaneous
  Country: US (occurrence: US)
  Receive Date: 20130725
  Receipt Date: 20130725
  Transmission Date: 20140515
  Serious: Yes (Other)
  Sender: FDA-Public Use
  Company Number: PHHY2013US077547

PATIENT
  Age: 21 Year
  Sex: Female

DRUGS (4)
  1. RIFAMPICIN [Suspect]
     Indication: LYMPH NODE TUBERCULOSIS
  2. ISONIAZID [Suspect]
     Indication: LYMPH NODE TUBERCULOSIS
  3. ETHAMBUTOL [Suspect]
     Indication: LYMPH NODE TUBERCULOSIS
  4. PYRAZINAMIDE [Suspect]
     Indication: LYMPH NODE TUBERCULOSIS

REACTIONS (2)
  - Paradoxical drug reaction [Not Recovered/Not Resolved]
  - Lymph node tuberculosis [Not Recovered/Not Resolved]
